FAERS Safety Report 23982547 (Version 1)
Quarter: 2024Q2

REPORT INFORMATION
  Report Type: Spontaneous
  Country: US (occurrence: US)
  Receive Date: 20240617
  Receipt Date: 20240617
  Transmission Date: 20240716
  Serious: Yes (Life-Threatening, Hospitalization)
  Sender: FDA-Public Use
  Company Number: US-MLMSERVICE-20240605-PI089415-00229-1

PATIENT
  Age: 73 Year
  Sex: Female

DRUGS (2)
  1. MORPHINE SULFATE [Suspect]
     Active Substance: MORPHINE SULFATE
     Indication: Arthralgia
     Dosage: 60 MILLIGRAM, Q8H
     Route: 065
  2. MORPHINE SULFATE [Suspect]
     Active Substance: MORPHINE SULFATE
     Indication: Back pain

REACTIONS (2)
  - Drug withdrawal syndrome [Recovering/Resolving]
  - Stress cardiomyopathy [Recovering/Resolving]
